FAERS Safety Report 9396201 (Version 1)
Quarter: 2013Q3

REPORT INFORMATION
  Report Type: Report from Study
  Country: ES (occurrence: ES)
  Receive Date: 20130711
  Receipt Date: 20130711
  Transmission Date: 20140515
  Serious: Yes (Death, Life-Threatening, Hospitalization, Disabling)
  Sender: FDA-Public Use
  Company Number: ES-BAXTER-2013BAX026034

PATIENT
  Age: 76 Year
  Sex: Female
  Weight: 61 kg

DRUGS (10)
  1. GENOXAL 1 G INYECTABLE [Suspect]
     Indication: PLASMA CELL MYELOMA
     Route: 048
     Dates: start: 20130423, end: 20130527
  2. DEXAMETHASONE [Suspect]
     Indication: PLASMA CELL MYELOMA
     Route: 048
     Dates: start: 20130423, end: 20130528
  3. DUROGESIC [Concomitant]
     Indication: ANALGESIC THERAPY
     Route: 065
     Dates: start: 20130423, end: 20130528
  4. SEVREDOL [Concomitant]
     Indication: ANALGESIC THERAPY
     Route: 048
     Dates: start: 20130524, end: 20130526
  5. PRIMPERAN [Concomitant]
     Indication: ANTIEMETIC SUPPORTIVE CARE
     Route: 048
     Dates: end: 20130527
  6. GABAPENTIN [Concomitant]
     Indication: ANALGESIC THERAPY
     Route: 048
     Dates: start: 20130423, end: 20130527
  7. OMEPRAZOLE [Concomitant]
     Indication: PROPHYLAXIS AGAINST GASTROINTESTINAL ULCER
     Route: 048
  8. FLUCONAZOL [Concomitant]
     Indication: ANTIFUNGAL PROPHYLAXIS
     Route: 048
     Dates: start: 20130425, end: 20130602
  9. ACICLOVIR [Concomitant]
     Indication: ANTIFUNGAL PROPHYLAXIS
     Route: 048
     Dates: start: 20130425, end: 20130529
  10. FOSRENOL [Concomitant]
     Indication: ELECTROLYTE IMBALANCE
     Route: 048
     Dates: start: 20130425, end: 20130527

REACTIONS (2)
  - Encephalitis viral [Fatal]
  - Pain [Unknown]
